FAERS Safety Report 9214148 (Version 1)
Quarter: 2013Q2

REPORT INFORMATION
  Report Type: Spontaneous
  Country: GB (occurrence: GB)
  Receive Date: 20130405
  Receipt Date: 20130405
  Transmission Date: 20140414
  Serious: Yes (Other)
  Sender: FDA-Public Use
  Company Number: GB-MERCK-1304GBR002485

PATIENT
  Sex: 0

DRUGS (1)
  1. FOSAMAX [Suspect]
     Indication: PROPHYLAXIS
     Route: 048

REACTIONS (1)
  - Stress fracture [Unknown]
